FAERS Safety Report 14539300 (Version 2)
Quarter: 2020Q2

REPORT INFORMATION
  Report Type: Report from Study
  Country: US (occurrence: US)
  Receive Date: 20180216
  Receipt Date: 20200413
  Transmission Date: 20200713
  Serious: Yes (Other)
  Sender: FDA-Public Use
  Company Number: PHEH2018US005760

PATIENT
  Sex: Female
  Weight: 120.2 kg

DRUGS (3)
  1. KETOCONAZOLE. [Concomitant]
     Active Substance: KETOCONAZOLE
     Indication: PRODUCT USED FOR UNKNOWN INDICATION
     Dosage: UNK UNK, QD
     Route: 065
  2. ASPIRIN. [Concomitant]
     Active Substance: ASPIRIN
     Indication: PRODUCT USED FOR UNKNOWN INDICATION
     Dosage: UNK
     Route: 065
  3. COSENTYX [Suspect]
     Active Substance: SECUKINUMAB
     Indication: PSORIASIS
     Dosage: 300 MG, QMO
     Route: 065
     Dates: start: 20170417

REACTIONS (3)
  - Psoriatic arthropathy [Unknown]
  - Dizziness [Unknown]
  - Skin candida [Unknown]

NARRATIVE: CASE EVENT DATE: 201704
